FAERS Safety Report 15693374 (Version 3)
Quarter: 2019Q1

REPORT INFORMATION
  Report Type: Spontaneous
  Country: US (occurrence: US)
  Receive Date: 20181206
  Receipt Date: 20190219
  Transmission Date: 20190417
  Serious: Yes (Other)
  Sender: FDA-Public Use
  Company Number: US-TEVA-2018-US-984322

PATIENT
  Age: 62 Year
  Sex: Male

DRUGS (1)
  1. AJOVY [Suspect]
     Active Substance: FREMANEZUMAB-VFRM
     Indication: CLUSTER HEADACHE
     Dates: start: 20181113, end: 20181113

REACTIONS (7)
  - Back pain [Recovered/Resolved]
  - Muscle spasms [Recovering/Resolving]
  - Cardiac complication associated with device [Recovered/Resolved with Sequelae]
  - Ventricular tachycardia [Recovered/Resolved with Sequelae]
  - Arthralgia [Recovered/Resolved]
  - Abdominal pain lower [Recovering/Resolving]
  - Myalgia [Recovered/Resolved with Sequelae]

NARRATIVE: CASE EVENT DATE: 201811
